FAERS Safety Report 10027810 (Version 2)
Quarter: 2014Q2

REPORT INFORMATION
  Report Type: Spontaneous
  Country: US (occurrence: US)
  Receive Date: 20140321
  Receipt Date: 20140430
  Transmission Date: 20141212
  Serious: Yes (Other)
  Sender: FDA-Public Use
  Company Number: US-PFIZER INC-2014080897

PATIENT
  Age: 50 Year
  Sex: Female

DRUGS (17)
  1. XELJANZ [Suspect]
     Indication: RHEUMATOID ARTHRITIS
     Dosage: 5 MG, 2X/DAY
     Route: 048
     Dates: start: 20140212
  2. XELJANZ [Suspect]
     Dosage: 5 MG, 1X/DAY
     Route: 048
  3. ALBUTEROL SULFATE [Concomitant]
     Indication: COUGH
     Dosage: USE 0.5ML IN 2 TO 3 ML OF SALINE EVERY 4 TO 6 HOURS AS NEEDED
     Route: 045
     Dates: start: 20120703
  4. ALBUTEROL SULFATE [Concomitant]
     Indication: WHEEZING
  5. AMLODIPINE BESYLATE [Concomitant]
     Dosage: 10 MG, DAILY
     Route: 048
     Dates: start: 20101222
  6. CELEBREX [Concomitant]
     Indication: RHEUMATOID ARTHRITIS
     Dosage: 200 MG, 2X/DAY
     Route: 048
     Dates: start: 20111114
  7. CYCLOBENZAPRINE HCL [Concomitant]
     Indication: PAIN
     Dosage: 10 MG TAKE 1 TABLET 3 TIMES DAILY PRN
     Route: 048
     Dates: start: 20130813
  8. CYMBALTA [Concomitant]
     Dosage: 60 MG, DAILY
     Route: 048
     Dates: start: 20101222
  9. FOLIC ACID [Concomitant]
     Dosage: 1 MG, 2X/DAY
     Route: 048
     Dates: start: 20101222
  10. HYDROCHLOROTHIAZIDE [Concomitant]
     Dosage: 25 MG, 1X/DAY
     Route: 048
     Dates: start: 20101222
  11. HYDROCODONE W/ACETAMINOPHEN [Concomitant]
     Indication: PAIN
     Dosage: HYDROCODONE BITARTRATE 10 MG, PARACETAMOL 325 MG
     Route: 048
     Dates: start: 20101222
  12. LORATADINE [Concomitant]
     Indication: HYPERSENSITIVITY
     Dosage: 10 MG, 1X/DAY
     Route: 048
     Dates: start: 20101222
  13. METHOTREXATE [Concomitant]
     Dosage: 2.5 MG, TAKE 8 TABLETS BY MOUTH, WEEKLY (EVERY WEEK AT ONE TIME)
     Route: 048
     Dates: start: 20101222
  14. PRO-AIR [Concomitant]
     Dosage: INHALE 2 PUFFS FOUR TIMES DAILY AS DIRECTED
     Route: 045
     Dates: start: 20120126
  15. RANITIDINE [Concomitant]
     Dosage: 150 MG, 2X/DAY
     Route: 048
     Dates: start: 20110322
  16. VOLTAREN [Concomitant]
     Indication: PAIN
     Dosage: 4 GR, 4XDAY TO KNEES AND 2GR, 4XDAY TO HANDS, AS NEEDED
     Route: 062
     Dates: start: 20110609
  17. VOLTAREN [Concomitant]
     Dosage: 2 G, 4X/DAY
     Dates: start: 20110609

REACTIONS (5)
  - Cardiac flutter [Not Recovered/Not Resolved]
  - Palpitations [Not Recovered/Not Resolved]
  - Abdominal discomfort [Not Recovered/Not Resolved]
  - Nausea [Not Recovered/Not Resolved]
  - Abdominal pain [Unknown]
